FAERS Safety Report 21255062 (Version 1)
Quarter: 2022Q3

REPORT INFORMATION
  Report Type: Spontaneous
  Country: US (occurrence: None)
  Receive Date: 20220824
  Receipt Date: 20220824
  Transmission Date: 20221027
  Serious: Yes (Other)
  Sender: FDA-Public Use
  Company Number: None

PATIENT
  Age: 26 Year
  Sex: Male

DRUGS (1)
  1. DESCOVY [Suspect]
     Active Substance: EMTRICITABINE\TENOFOVIR ALAFENAMIDE FUMARATE
     Indication: Prophylaxis against HIV infection
     Dosage: OTHER QUANTITY : 200-25 MG;?FREQUENCY : ONCE;?
     Route: 048
     Dates: start: 202206, end: 202208

REACTIONS (1)
  - Weight increased [None]

NARRATIVE: CASE EVENT DATE: 20220601
